FAERS Safety Report 5253566-6 (Version None)
Quarter: 2007Q1

REPORT INFORMATION
  Report Type: 
  Country: None (occurrence: None)
  Receive Date: 20070301
  Receipt Date: 20070221
  Transmission Date: 20070707
  Serious: Yes (Hospitalization, Other)
  Sender: FDA-Public Use
  Company Number: US-PFIZER INC-2006059081

PATIENT
  Sex: Female

DRUGS (10)
  1. CELEBREX [Suspect]
     Indication: OSTEOARTHRITIS
     Route: 048
  2. CELEBREX [Suspect]
     Indication: RHEUMATOID ARTHRITIS
  3. BEXTRA [Suspect]
     Indication: OSTEOARTHRITIS
     Route: 048
  4. BEXTRA [Suspect]
     Indication: RHEUMATOID ARTHRITIS
  5. VIOXX [Suspect]
     Route: 048
  6. AMITRIPTYLINE HCL [Concomitant]
  7. ISOSORBIDE [Concomitant]
     Dates: start: 20030110
  8. LANOXIN [Concomitant]
     Dates: start: 20020214
  9. POTASSIUM ACETATE [Concomitant]
  10. OXYBUTYNIN [Concomitant]
     Dates: start: 20021125

REACTIONS (2)
  - CEREBROVASCULAR ACCIDENT [None]
  - MYOCARDIAL INFARCTION [None]
